FAERS Safety Report 4339641-9 (Version None)
Quarter: 2004Q2

REPORT INFORMATION
  Report Type: 
  Country: None (occurrence: None)
  Receive Date: 20040415
  Receipt Date: 20040401
  Transmission Date: 20050107
  Serious: Yes (Hospitalization)
  Sender: FDA-Public Use
  Company Number: DK-MERCK-0404DNK00002

PATIENT
  Age: 71 Year
  Sex: Male

DRUGS (4)
  1. ASPIRIN [Concomitant]
     Route: 065
  2. RAMIPRIL [Concomitant]
     Route: 065
     Dates: start: 20030409
  3. VIOXX [Suspect]
     Route: 048
     Dates: start: 20030409, end: 20030411
  4. VIOXX [Suspect]
     Route: 048
     Dates: start: 20030413, end: 20030415

REACTIONS (2)
  - ATRIOVENTRICULAR BLOCK FIRST DEGREE [None]
  - SYNCOPE [None]
